FAERS Safety Report 22214511 (Version 1)
Quarter: 2023Q2

REPORT INFORMATION
  Report Type: Spontaneous
  Country: BE (occurrence: BE)
  Receive Date: 20230414
  Receipt Date: 20230414
  Transmission Date: 20230721
  Serious: Yes (Hospitalization, Other)
  Sender: FDA-Public Use
  Company Number: BE-CELLTRION INC.-2023BE007607

PATIENT

DRUGS (2)
  1. RITUXIMAB [Suspect]
     Active Substance: RITUXIMAB
     Indication: Susac^s syndrome
  2. MYCOPHENOLATE MOFETIL [Suspect]
     Active Substance: MYCOPHENOLATE MOFETIL
     Indication: Susac^s syndrome

REACTIONS (5)
  - Leukopenia [Unknown]
  - Hypogammaglobulinaemia [Unknown]
  - Bacterial sepsis [Unknown]
  - Lymphopenia [Unknown]
  - Off label use [Unknown]
